FAERS Safety Report 21912046 (Version 1)
Quarter: 2023Q1

REPORT INFORMATION
  Report Type: Spontaneous
  Country: US (occurrence: US)
  Receive Date: 20230125
  Receipt Date: 20230125
  Transmission Date: 20230417
  Serious: No
  Sender: FDA-Public Use
  Company Number: US-ALLERGAN-2231402US

PATIENT
  Sex: Female

DRUGS (10)
  1. BOTOX [Suspect]
     Active Substance: ONABOTULINUMTOXINA
     Indication: Migraine
     Dosage: 20 UNITS DIVIDED INTO 4 SITES, SINGLE
     Dates: start: 20220622, end: 20220622
  2. BOTOX [Suspect]
     Active Substance: ONABOTULINUMTOXINA
     Dosage: 10 UNITS DIVIDED INTO 2 SITES, SINGLE
     Dates: start: 20220622, end: 20220622
  3. BOTOX [Suspect]
     Active Substance: ONABOTULINUMTOXINA
     Dosage: 5 UNITS DIVIDED INTO 1 SITE, SINGLE
     Dates: start: 20220622, end: 20220622
  4. BOTOX [Suspect]
     Active Substance: ONABOTULINUMTOXINA
     Dosage: 40 UNITS DIVIDED INTO 8 SITES,SINGLE
     Dates: start: 20220622, end: 20220622
  5. BOTOX [Suspect]
     Active Substance: ONABOTULINUMTOXINA
     Dosage: 30 UNITS DIVIDED INTO 6 SITES, SINGLE
     Dates: start: 20220622, end: 20220622
  6. BOTOX [Suspect]
     Active Substance: ONABOTULINUMTOXINA
     Dosage: 30 UNITS DIVIDED INTO 6 SITES, SINGLE
     Dates: start: 20220622, end: 20220622
  7. BOTOX [Suspect]
     Active Substance: ONABOTULINUMTOXINA
     Dosage: 10 UNITS DIVIDED INTO 2 SITES, SINGLE
     Dates: start: 20220622, end: 20220622
  8. BOTOX [Suspect]
     Active Substance: ONABOTULINUMTOXINA
     Dosage: 15 UNITS DIVIDED INTO 2 SITES, SINGLE
     Dates: start: 20220622, end: 20220622
  9. BOTOX [Suspect]
     Active Substance: ONABOTULINUMTOXINA
     Dosage: 40 UNITS  DIVIDED INTO 6 SITES, SINGLE
     Dates: start: 20220622, end: 20220622
  10. BOTOX [Suspect]
     Active Substance: ONABOTULINUMTOXINA
     Dosage: UNK, SINGLE

REACTIONS (2)
  - Off label use [Unknown]
  - Migraine [Unknown]

NARRATIVE: CASE EVENT DATE: 20220101
